FAERS Safety Report 5094818-2 (Version None)
Quarter: 2006Q3

REPORT INFORMATION
  Report Type: 
  Country: None (occurrence: None)
  Receive Date: 20060830
  Receipt Date: 20060830
  Transmission Date: 20061208
  Serious: Yes (Hospitalization)
  Sender: FDA-Public Use
  Company Number: None

PATIENT
  Sex: Female
  Weight: 68 kg

DRUGS (1)
  1. MELPHALAN [Suspect]
     Dosage: 174 MG OVER 20 MINUTES

REACTIONS (4)
  - ACUTE MYOCARDIAL INFARCTION [None]
  - BREATH SOUNDS ABNORMAL [None]
  - CONFUSIONAL STATE [None]
  - HYPOXIA [None]
